FAERS Safety Report 4846311-7 (Version None)
Quarter: 2005Q4

REPORT INFORMATION
  Report Type: 
  Country: None (occurrence: None)
  Receive Date: 20051202
  Receipt Date: 20051202
  Transmission Date: 20060501
  Serious: Yes (Hospitalization)
  Sender: FDA-Public Use
  Company Number: None

PATIENT
  Age: 44 Year
  Sex: Male
  Weight: 122.0176 kg

DRUGS (7)
  1. CLOZARIL [Suspect]
     Indication: SCHIZOPHRENIA
     Dosage: 275 MG Q HS PO
     Route: 048
  2. RISPERDAL [Concomitant]
  3. BENZTROPINE MESYLATE [Concomitant]
  4. DEPAKOTE [Concomitant]
  5. GABITRIL [Concomitant]
  6. LAMICTAL [Concomitant]
  7. TEMAZEPAM [Concomitant]

REACTIONS (3)
  - NEUTROPENIC SEPSIS [None]
  - PNEUMONIA [None]
  - WHITE BLOOD CELL COUNT DECREASED [None]
